FAERS Safety Report 17158939 (Version 2)
Quarter: 2020Q1

REPORT INFORMATION
  Report Type: Report from Study
  Country: US (occurrence: US)
  Receive Date: 20191216
  Receipt Date: 20200206
  Transmission Date: 20200409
  Serious: Yes (Death, Hospitalization, Other)
  Sender: FDA-Public Use
  Company Number: US-MYLANLABS-2019M1124037

PATIENT
  Age: 65 Year
  Sex: Female

DRUGS (6)
  1. CLOZAPINE. [Suspect]
     Active Substance: CLOZAPINE
     Indication: SCHIZOAFFECTIVE DISORDER BIPOLAR TYPE
     Dosage: 3 DOSAGE FORM, AM
     Route: 048
     Dates: start: 2005, end: 2019
  2. CLOZAPINE. [Suspect]
     Active Substance: CLOZAPINE
     Dosage: 2 DOSAGE FORM, HS
     Route: 048
     Dates: start: 2005, end: 2019
  3. VITAMIN D3 [Concomitant]
     Active Substance: CHOLECALCIFEROL
     Dosage: 2000 U, QD
  4. CLONAZEPAM. [Suspect]
     Active Substance: CLONAZEPAM
     Indication: PRODUCT USED FOR UNKNOWN INDICATION
     Dosage: 0.5 MILLIGRAM, PRN(BID)
  5. VITAMIN D2 [Suspect]
     Active Substance: ERGOCALCIFEROL
     Indication: PRODUCT USED FOR UNKNOWN INDICATION
     Dosage: UNK
  6. DEPAKOTE [Suspect]
     Active Substance: DIVALPROEX SODIUM
     Indication: PRODUCT USED FOR UNKNOWN INDICATION
     Dosage: 1500 MILLIGRAM, QD

REACTIONS (4)
  - Urinary tract infection [Unknown]
  - Death [Fatal]
  - Mental status changes [Unknown]
  - Pneumonia [Unknown]

NARRATIVE: CASE EVENT DATE: 20191220
